FAERS Safety Report 9291000 (Version 1)
Quarter: 2013Q2

REPORT INFORMATION
  Report Type: Spontaneous
  Country: US (occurrence: US)
  Receive Date: 20130515
  Receipt Date: 20130515
  Transmission Date: 20140414
  Serious: No
  Sender: FDA-Public Use
  Company Number: US-009507513-1305USA009349

PATIENT
  Age: 35 Year
  Sex: Female

DRUGS (2)
  1. CLARITIN [Suspect]
     Indication: URTICARIA
     Dosage: 10 MG, BID
     Route: 048
     Dates: start: 20130426
  2. CLARITIN [Suspect]
     Indication: HYPERSENSITIVITY

REACTIONS (1)
  - Overdose [Unknown]
